FAERS Safety Report 8852098 (Version 3)
Quarter: 2013Q2

REPORT INFORMATION
  Report Type: Spontaneous
  Country: US (occurrence: US)
  Receive Date: 20121022
  Receipt Date: 20130426
  Transmission Date: 20140414
  Serious: No
  Sender: FDA-Public Use
  Company Number: US-009507513-1210USA008929

PATIENT
  Age: 65 Year
  Sex: Female

DRUGS (2)
  1. SINGULAIR [Suspect]
     Route: 048
  2. PRINIVIL [Suspect]
     Route: 048

REACTIONS (6)
  - Urticaria [Recovered/Resolved]
  - Peripheral coldness [Unknown]
  - Erythema [Unknown]
  - Local swelling [Unknown]
  - Limb discomfort [Unknown]
  - Oedema [Unknown]
